FAERS Safety Report 4437754-4 (Version None)
Quarter: 2004Q3

REPORT INFORMATION
  Report Type: 
  Country: None (occurrence: None)
  Receive Date: 20040830
  Receipt Date: 20040830
  Transmission Date: 20050211
  Serious: Yes (Other)
  Sender: FDA-Public Use
  Company Number: None

PATIENT
  Sex: Female
  Weight: 56.7 kg

DRUGS (4)
  1. MEPERIDINE HCL [Suspect]
     Indication: PAIN MANAGEMENT
     Dosage: 6 MG/HR COUNTINUOUS EPIDURAL
     Route: 008
     Dates: start: 20030829, end: 20030830
  2. MEPERIDINE HCL [Suspect]
     Indication: POST PROCEDURAL PAIN
     Dosage: 6 MG/HR COUNTINUOUS EPIDURAL
     Route: 008
     Dates: start: 20030829, end: 20030830
  3. SERTRALINE HCL [Concomitant]
  4. CEFAZOLIN [Concomitant]

REACTIONS (3)
  - DISORIENTATION [None]
  - GRAND MAL CONVULSION [None]
  - URINARY INCONTINENCE [None]
